FAERS Safety Report 7057805-0 (Version None)
Quarter: 2010Q4

REPORT INFORMATION
  Report Type: 
  Country: None (occurrence: None)
  Receive Date: 20101022
  Receipt Date: 20101011
  Transmission Date: 20110411
  Serious: Yes (Other)
  Sender: FDA-Public Use
  Company Number: US-PFIZER INC-2010099767

PATIENT
  Sex: Female

DRUGS (7)
  1. CHANTIX [Suspect]
     Indication: SMOKING CESSATION THERAPY
     Dosage: STARTER PACK
     Dates: start: 20070401, end: 20070601
  2. ANAPROX [Concomitant]
     Indication: CARPAL TUNNEL SYNDROME
     Dosage: UNK
     Dates: start: 20070501, end: 20070601
  3. PROZAC [Concomitant]
     Indication: ANXIETY DISORDER
     Dosage: UNK
     Dates: start: 20051001
  4. PROZAC [Concomitant]
     Indication: DEPRESSION
  5. UNIRETIC [Concomitant]
     Indication: HYPERTENSION
     Dosage: UNK
     Dates: start: 20051201
  6. PROVERA [Concomitant]
     Indication: UTERINE HAEMORRHAGE
     Dosage: UNK
     Dates: start: 20070501, end: 20070501
  7. ED A-HIST [Concomitant]
     Indication: RHINITIS ALLERGIC
     Dosage: UNK
     Dates: start: 20070401, end: 20070501

REACTIONS (4)
  - ANXIETY [None]
  - DEPRESSION [None]
  - MENTAL DISORDER [None]
  - SUICIDAL IDEATION [None]
